FAERS Safety Report 18134784 (Version 1)
Quarter: 2020Q3

REPORT INFORMATION
  Report Type: Spontaneous
  Country: US (occurrence: US)
  Receive Date: 20200810
  Receipt Date: 20200810
  Transmission Date: 20201103
  Serious: Yes (Hospitalization)
  Sender: FDA-Public Use
  Company Number: None

PATIENT
  Age: 43 Year
  Sex: Female

DRUGS (10)
  1. NOVOLOG [Concomitant]
     Active Substance: INSULIN ASPART
  2. BUPROPION. [Concomitant]
     Active Substance: BUPROPION
  3. ATORVASTATIN [Concomitant]
     Active Substance: ATORVASTATIN
  4. AMOXILICCIN CLAVULANATE [Concomitant]
  5. HUMIRA [Suspect]
     Active Substance: ADALIMUMAB
     Indication: PSORIASIS
     Dosage: ?          OTHER FREQUENCY:EVERY TWO WEEKS;?
     Route: 058
     Dates: start: 20180323
  6. ASPIRIN. [Concomitant]
     Active Substance: ASPIRIN
  7. LEVEMIR [Concomitant]
     Active Substance: INSULIN DETEMIR
  8. PIOGLITAZONE. [Concomitant]
     Active Substance: PIOGLITAZONE
  9. CONTOUR [Concomitant]
  10. METFORMIN [Concomitant]
     Active Substance: METFORMIN HYDROCHLORIDE

REACTIONS (1)
  - Localised infection [None]

NARRATIVE: CASE EVENT DATE: 20200725
